FAERS Safety Report 8265497-8 (Version None)
Quarter: 2012Q2

REPORT INFORMATION
  Report Type: 
  Country: None (occurrence: None)
  Receive Date: 20120406
  Receipt Date: 20120403
  Transmission Date: 20120825
  Serious: Yes (Death)
  Sender: FDA-Public Use
  Company Number: IN-PFIZER INC-2012084856

PATIENT

DRUGS (1)
  1. MAGNAMYCIN [Suspect]

REACTIONS (1)
  - DEATH [None]
